FAERS Safety Report 22921348 (Version 2)
Quarter: 2024Q3

REPORT INFORMATION
  Report Type: Spontaneous
  Country: US (occurrence: None)
  Receive Date: 20230908
  Receipt Date: 20240906
  Transmission Date: 20241016
  Serious: No
  Sender: DOMPE FARMACEUTICI
  Company Number: US-FARMAPROD-202305-1602

PATIENT
  Sex: Female
  Weight: 81.65 kg

DRUGS (23)
  1. OXERVATE [Suspect]
     Active Substance: CENEGERMIN-BKBJ
     Indication: Neurotrophic keratopathy
     Route: 047
     Dates: start: 20230522
  2. VITAMIN C [Concomitant]
     Active Substance: ASCORBIC ACID
  3. FLAXSEED [Concomitant]
     Active Substance: FLAX SEED
  4. SPIRIVA [Concomitant]
     Active Substance: TIOTROPIUM BROMIDE MONOHYDRATE
     Dosage: HANDIHALER CAPSULE WITH DEVICE
  5. ALBUTEROL SULFATE [Concomitant]
     Active Substance: ALBUTEROL SULFATE
  6. ALBUTEROL SULFATE [Concomitant]
     Active Substance: ALBUTEROL SULFATE
     Dosage: HYDROFLUOROALKANE AEROSOL WITH ADAPTER
  7. CALCIUM [Concomitant]
     Active Substance: CALCIUM
     Dosage: 500(1250)
  8. ZEGERID [Concomitant]
     Active Substance: OMEPRAZOLE\SODIUM BICARBONATE
     Dosage: 20-1680MG PACKET
  9. PROBIOTICS NOS [Concomitant]
     Active Substance: PROBIOTICS NOS
     Dosage: 100B CELL
  10. VITAMIN B12 [Concomitant]
     Active Substance: CYANOCOBALAMIN
  11. OXAPROZIN [Concomitant]
     Active Substance: OXAPROZIN
  12. VALACYCLOVIR [Concomitant]
     Active Substance: VALACYCLOVIR HYDROCHLORIDE
  13. ACETAMINOPHEN [Concomitant]
     Active Substance: ACETAMINOPHEN
  14. CYCLOBENZAPRINE HYDROCHLORIDE [Concomitant]
     Active Substance: CYCLOBENZAPRINE HYDROCHLORIDE
  15. CYCLOSPORINE [Concomitant]
     Active Substance: CYCLOSPORINE
  16. MONTELUKAST SODIUM [Concomitant]
     Active Substance: MONTELUKAST\MONTELUKAST SODIUM
  17. VITAMIN D3 [Concomitant]
     Active Substance: CHOLECALCIFEROL
  18. METOPROLOL SUCCINATE [Concomitant]
     Active Substance: METOPROLOL SUCCINATE
  19. FUROSEMIDE [Concomitant]
     Active Substance: FUROSEMIDE
  20. ROSUVASTATIN CALCIUM [Concomitant]
     Active Substance: ROSUVASTATIN CALCIUM
  21. BROVANA [Concomitant]
     Active Substance: ARFORMOTEROL TARTRATE
     Dosage: 15MCG/2ML VIAL-NEB
  22. ASPIRIN [Concomitant]
     Active Substance: ASPIRIN
  23. CETIRIZINE HCL [Concomitant]
     Active Substance: CETIRIZINE HYDROCHLORIDE

REACTIONS (1)
  - Eye pain [Recovered/Resolved]
